FAERS Safety Report 5621636-6 (Version None)
Quarter: 2008Q1

REPORT INFORMATION
  Report Type: 
  Country: None (occurrence: None)
  Receive Date: 20080211
  Receipt Date: 20080128
  Transmission Date: 20080703
  Serious: Yes (Other)
  Sender: FDA-Public Use
  Company Number: US-AMGEN-QUU246464

PATIENT
  Sex: Male
  Weight: 108.1 kg

DRUGS (1)
  1. ENBREL [Suspect]
     Indication: PSORIASIS
     Route: 058
     Dates: start: 20030401, end: 20071003

REACTIONS (8)
  - CEREBROVASCULAR DISORDER [None]
  - DEMYELINATION [None]
  - DIZZINESS [None]
  - GLIOMA [None]
  - INFECTION [None]
  - MULTIPLE SCLEROSIS [None]
  - SIMPLE PARTIAL SEIZURES [None]
  - TINNITUS [None]
